FAERS Safety Report 5721457-X (Version None)
Quarter: 2008Q2

REPORT INFORMATION
  Report Type: 
  Country: None (occurrence: None)
  Receive Date: 20080428
  Receipt Date: 20080428
  Transmission Date: 20081010
  Serious: Yes (Life-Threatening, Hospitalization)
  Sender: FDA-Public Use
  Company Number: None

PATIENT
  Age: 32 Year
  Sex: Female
  Weight: 65.7716 kg

DRUGS (2)
  1. YASMIN [Suspect]
     Indication: MENSTRUATION IRREGULAR
     Dosage: 1 PILL DAILY PO
     Route: 048
     Dates: start: 20060601, end: 20061018
  2. YASMIN [Suspect]
     Indication: SKIN DISORDER
     Dosage: 1 PILL DAILY PO
     Route: 048
     Dates: start: 20060601, end: 20061018

REACTIONS (5)
  - CARDIAC ARREST [None]
  - CARDIAC DISORDER [None]
  - LUNG DISORDER [None]
  - PULMONARY EMBOLISM [None]
  - THROMBOSIS [None]
